FAERS Safety Report 8886919 (Version 1)
Quarter: 2012Q4

REPORT INFORMATION
  Report Type: 
  Country: FR (occurrence: FR)
  Receive Date: 20121105
  Receipt Date: 20121105
  Transmission Date: 20130627
  Serious: Yes (Hospitalization)
  Sender: FDA-Public Use
  Company Number: PHHY2012FR092953

PATIENT
  Age: 75 Year
  Sex: Male

DRUGS (2)
  1. ONBREZ [Suspect]
     Indication: CHRONIC OBSTRUCTIVE PULMONARY DISEASE
     Dosage: 150 ug, QD
  2. SPIRIVA [Suspect]
     Indication: DYSPNOEA

REACTIONS (3)
  - Bronchopneumopathy [Unknown]
  - Dyspnoea [Unknown]
  - Malaise [Unknown]
